FAERS Safety Report 5941799-2 (Version None)
Quarter: 2008Q4

REPORT INFORMATION
  Report Type: 
  Country: None (occurrence: None)
  Receive Date: 20081105
  Receipt Date: 20081030
  Transmission Date: 20090506
  Serious: Yes (Other)
  Sender: FDA-Public Use
  Company Number: PHHY2008DE24856

PATIENT
  Age: 51 Year
  Sex: Male

DRUGS (4)
  1. RASILEZ [Suspect]
     Indication: HYPERTENSION
     Dosage: 150 MG/DAY
     Route: 048
     Dates: start: 20080701
  2. DIOVAN [Concomitant]
     Indication: HYPERTENSION
     Dosage: 160 MG/ DAY
     Route: 048
     Dates: start: 20080501
  3. AMLODIPINE [Concomitant]
     Indication: HYPERTENSION
     Dosage: 10 MG/DAY
     Route: 048
     Dates: start: 20080501
  4. OPIPRAMOL [Concomitant]
     Indication: ANXIETY
     Dosage: 50 MG/DAY
     Route: 048
     Dates: start: 20080501

REACTIONS (4)
  - ANXIETY [None]
  - BLOOD PRESSURE INADEQUATELY CONTROLLED [None]
  - CHEST PAIN [None]
  - PANIC DISORDER [None]
